FAERS Safety Report 11740537 (Version 2)
Quarter: 2015Q4

REPORT INFORMATION
  Report Type: Spontaneous
  Country: US (occurrence: US)
  Receive Date: 20151110
  Receipt Date: 20151120
  Transmission Date: 20160304
  Serious: No
  Sender: FDA-Public Use
  Company Number: US-ELI_LILLY_AND_COMPANY-US201111009088

PATIENT
  Age: 73 Year
  Sex: Female

DRUGS (3)
  1. FORTEO [Suspect]
     Active Substance: TERIPARATIDE
     Dosage: 20 UG, QD
     Route: 065
  2. FORTEO [Suspect]
     Active Substance: TERIPARATIDE
     Indication: OSTEOPOROSIS
     Dosage: 20 UG, QD
     Route: 065
     Dates: start: 201103
  3. FORTEO [Suspect]
     Active Substance: TERIPARATIDE
     Dosage: 20 UG, QD
     Route: 065

REACTIONS (10)
  - Visual acuity reduced [Unknown]
  - Fat redistribution [Unknown]
  - Hair disorder [Unknown]
  - Musculoskeletal discomfort [Recovered/Resolved]
  - Impaired healing [Unknown]
  - Carpal tunnel syndrome [Unknown]
  - Fall [Unknown]
  - Contusion [Unknown]
  - Bone pain [Unknown]
  - Skin irritation [Unknown]

NARRATIVE: CASE EVENT DATE: 201211
